FAERS Safety Report 7201681-X (Version None)
Quarter: 2010Q4

REPORT INFORMATION
  Report Type: 
  Country: None (occurrence: None)
  Receive Date: 20101229
  Receipt Date: 20101221
  Transmission Date: 20110411
  Serious: Yes (Other)
  Sender: FDA-Public Use
  Company Number: US-PFIZER INC-2010176934

PATIENT
  Sex: Female

DRUGS (4)
  1. XALATAN [Suspect]
     Indication: GLAUCOMA
     Dosage: 1 GTT, 1X/DAY EACH EYE
     Route: 047
     Dates: start: 20090101
  2. FLOVENT [Concomitant]
     Indication: NASAL POLYPS
     Dosage: UNK
  3. NASONEX [Concomitant]
     Indication: NASAL POLYPS
     Dosage: UNK
     Route: 045
  4. PRILOSEC [Concomitant]
     Indication: ABDOMINAL DISCOMFORT
     Dosage: UNK

REACTIONS (1)
  - HEARING IMPAIRED [None]
